FAERS Safety Report 7715228-2 (Version None)
Quarter: 2011Q3

REPORT INFORMATION
  Report Type: 
  Country: None (occurrence: None)
  Receive Date: 20110829
  Receipt Date: 20110823
  Transmission Date: 20111222
  Serious: Yes (Death, Hospitalization)
  Sender: FDA-Public Use
  Company Number: PHHY2011CA26432

PATIENT
  Sex: Male

DRUGS (1)
  1. ZOMETA [Suspect]
     Indication: METASTASES TO BONE
     Dosage: 3 MG, EVERY 4 WEEKS
     Route: 042
     Dates: start: 20110125

REACTIONS (3)
  - BLADDER DISORDER [None]
  - DEATH [None]
  - RENAL DISORDER [None]
